FAERS Safety Report 10995127 (Version 1)
Quarter: 2015Q2

REPORT INFORMATION
  Report Type: Spontaneous
  Country: FR (occurrence: FR)
  Receive Date: 20150407
  Receipt Date: 20150407
  Transmission Date: 20150821
  Serious: Yes (Hospitalization)
  Sender: FDA-Public Use
  Company Number: FR-ASTRAZENECA-2015SE09635

PATIENT
  Age: 1067 Month
  Sex: Female
  Weight: 48 kg

DRUGS (11)
  1. DICLOFENAC [Concomitant]
     Active Substance: DICLOFENAC
     Indication: PAIN
  2. AZOPT [Concomitant]
     Active Substance: BRINZOLAMIDE
     Indication: GLAUCOMA
  3. DAFALGAN [Concomitant]
     Active Substance: ACETAMINOPHEN
     Indication: PAIN
  4. DAFALGAN [Concomitant]
     Active Substance: ACETAMINOPHEN
     Indication: OSTEOARTHRITIS
  5. XEROQUEL [Suspect]
     Active Substance: QUETIAPINE FUMARATE
     Indication: DEPRESSION
     Route: 048
     Dates: end: 20141230
  6. XEROQUEL [Suspect]
     Active Substance: QUETIAPINE FUMARATE
     Indication: DEPRESSION
     Route: 048
  7. XEROQUEL [Suspect]
     Active Substance: QUETIAPINE FUMARATE
     Indication: DEPRESSION
     Route: 048
     Dates: start: 201501, end: 20150127
  8. NUTROF [Concomitant]
  9. XEROQUEL [Suspect]
     Active Substance: QUETIAPINE FUMARATE
     Indication: DEPRESSION
     Route: 048
     Dates: end: 201501
  10. DICLOFENAC [Concomitant]
     Active Substance: DICLOFENAC
     Indication: OSTEOARTHRITIS
  11. VITABACT [Concomitant]
     Active Substance: PICLOXYDINE DIHYDROCHLORIDE

REACTIONS (9)
  - Aggression [Recovered/Resolved]
  - Confusional state [Not Recovered/Not Resolved]
  - Cholecystitis infective [Recovering/Resolving]
  - Nightmare [Recovering/Resolving]
  - Irritability [Not Recovered/Not Resolved]
  - Cholecystitis [Recovering/Resolving]
  - Malaise [Recovered/Resolved]
  - Increased appetite [Recovering/Resolving]
  - Hypotension [Unknown]

NARRATIVE: CASE EVENT DATE: 201501
